FAERS Safety Report 20346921 (Version 1)
Quarter: 2022Q1

REPORT INFORMATION
  Report Type: Report from Study
  Country: CA (occurrence: CA)
  Receive Date: 20220118
  Receipt Date: 20220118
  Transmission Date: 20220423
  Serious: Yes (Hospitalization, Other)
  Sender: FDA-Public Use
  Company Number: CA-PFIZER INC-202200019429

PATIENT
  Age: 72 Year
  Sex: Male
  Weight: 78 kg

DRUGS (3)
  1. AXITINIB [Suspect]
     Active Substance: AXITINIB
     Dosage: UNK
     Route: 065
  2. PEMBROLIZUMAB [Suspect]
     Active Substance: PEMBROLIZUMAB
     Indication: Renal cell carcinoma
     Dosage: 200 MG, EVERY 3 WEEKS
     Route: 042
  3. PREDNISONE [Suspect]
     Active Substance: PREDNISONE
     Dosage: UNK
     Route: 065

REACTIONS (28)
  - Anger [Unknown]
  - Anxiety [Unknown]
  - Arthralgia [Unknown]
  - Blood pressure abnormal [Unknown]
  - Blood pressure increased [Unknown]
  - Clavicle fracture [Unknown]
  - Decreased appetite [Unknown]
  - Depression [Unknown]
  - Dry mouth [Unknown]
  - Dyspepsia [Unknown]
  - Dysphagia [Unknown]
  - Dyspnoea [Unknown]
  - Fall [Unknown]
  - Fatigue [Unknown]
  - Frustration tolerance decreased [Unknown]
  - Intra-abdominal fluid collection [Unknown]
  - Malaise [Unknown]
  - Nausea [Unknown]
  - Oropharyngeal pain [Unknown]
  - Pain [Unknown]
  - Pelvic fracture [Unknown]
  - Rib fracture [Unknown]
  - Sleep disorder [Unknown]
  - Somnolence [Unknown]
  - Weight increased [Unknown]
  - Neoplasm progression [Unknown]
  - Product use issue [Unknown]
  - Inappropriate schedule of product administration [Unknown]
